FAERS Safety Report 8495803 (Version 2)
Quarter: 2012Q4

REPORT INFORMATION
  Report Type: 
  Country: US (occurrence: US)
  Receive Date: 20120405
  Receipt Date: 20121018
  Transmission Date: 20130627
  Serious: Yes (Hospitalization)
  Sender: FDA-Public Use
  Company Number: US-ELI_LILLY_AND_COMPANY-US201203008353

PATIENT
  Age: 72 Year
  Sex: Male
  Weight: 95.24 kg

DRUGS (4)
  1. EFFIENT [Suspect]
     Indication: STENT PLACEMENT
     Dosage: 60 mg, loading dose
     Dates: start: 20111116
  2. EFFIENT [Suspect]
     Dosage: 10 mg, qd
     Route: 048
  3. ASPIRIN [Concomitant]
     Dosage: 325 mg, unknown
  4. GEMFIBROZIL [Concomitant]
     Dosage: 600 mg, bid

REACTIONS (2)
  - Fall [Recovered/Resolved]
  - Haemorrhage [Recovered/Resolved]
